FAERS Safety Report 7559555-0 (Version None)
Quarter: 2011Q2

REPORT INFORMATION
  Report Type: 
  Country: None (occurrence: None)
  Receive Date: 20110617
  Receipt Date: 20110617
  Transmission Date: 20111010
  Serious: Yes (Other)
  Sender: FDA-Public Use
  Company Number: None

PATIENT
  Sex: Female

DRUGS (1)
  1. COPAXONE [Suspect]
     Dosage: 20MG DAILY SQ
     Route: 058
     Dates: start: 20100401

REACTIONS (7)
  - DYSGEUSIA [None]
  - RENAL PAIN [None]
  - LOSS OF CONSCIOUSNESS [None]
  - FLUSHING [None]
  - HEART RATE INCREASED [None]
  - VENOUS INJURY [None]
  - PELVIC PAIN [None]
